FAERS Safety Report 4517636-X (Version None)
Quarter: 2004Q4

REPORT INFORMATION
  Report Type: 
  Country: None (occurrence: None)
  Receive Date: 20041203
  Receipt Date: 20041122
  Transmission Date: 20050328
  Serious: Yes (Death)
  Sender: FDA-Public Use
  Company Number: US-JNJFOC-20040306577

PATIENT
  Sex: Female

DRUGS (11)
  1. DURAGESIC [Suspect]
     Route: 062
     Dates: start: 20040113, end: 20040213
  2. DURAGESIC [Suspect]
     Route: 062
     Dates: start: 20040113, end: 20040213
  3. ZANAFLEX [Concomitant]
  4. VICODIN ES [Concomitant]
  5. VICODIN ES [Concomitant]
  6. LIDODERM [Concomitant]
  7. NEURONTIN [Concomitant]
  8. PREMARIN [Concomitant]
  9. ZYRTEC [Concomitant]
  10. CETIRIZINE HCL [Concomitant]
  11. DYCYCLOMINE [Concomitant]

REACTIONS (29)
  - ABDOMINAL PAIN [None]
  - ANXIETY [None]
  - APPLICATION SITE IRRITATION [None]
  - APPLICATION SITE PRURITUS [None]
  - BACK PAIN [None]
  - BALANCE DISORDER [None]
  - BLOOD ALKALINE PHOSPHATASE INCREASED [None]
  - BLOOD CHLORIDE DECREASED [None]
  - BLOOD GLUCOSE INCREASED [None]
  - BLOOD PRESSURE IMMEASURABLE [None]
  - CARDIO-RESPIRATORY ARREST [None]
  - CARDIOMEGALY [None]
  - CERVICAL SPINAL STENOSIS [None]
  - COMA [None]
  - CYANOSIS [None]
  - DIZZINESS [None]
  - DRUG TOXICITY [None]
  - FATIGUE [None]
  - FLANK PAIN [None]
  - HYPERHIDROSIS [None]
  - INTERVERTEBRAL DISC PROTRUSION [None]
  - LIPASE INCREASED [None]
  - MALAISE [None]
  - NAUSEA [None]
  - PAIN EXACERBATED [None]
  - PHARMACEUTICAL PRODUCT COMPLAINT [None]
  - RESPIRATORY RATE INCREASED [None]
  - VENTRICULAR HYPERTROPHY [None]
  - VOMITING [None]
